FAERS Safety Report 17055557 (Version 2)
Quarter: 2020Q1

REPORT INFORMATION
  Report Type: Other
  Country: IT (occurrence: IT)
  Receive Date: 20191120
  Receipt Date: 20200107
  Transmission Date: 20200409
  Serious: Yes (Hospitalization, Other)
  Sender: FDA-Public Use
  Company Number: IT-VALIDUS PHARMACEUTICALS LLC-IT-2019VAL000781

PATIENT

DRUGS (3)
  1. LASIX [Suspect]
     Active Substance: FUROSEMIDE
     Indication: INTENTIONAL SELF-INJURY
     Dosage: 750 MG, TOTAL
     Route: 048
     Dates: start: 20190917, end: 20190917
  2. PARACETAMOL [Suspect]
     Active Substance: ACETAMINOPHEN
     Indication: INTENTIONAL SELF-INJURY
     Dosage: 12 G, TOTAL
     Route: 048
     Dates: start: 20190917, end: 20190917
  3. COUMADIN [Suspect]
     Active Substance: WARFARIN SODIUM
     Indication: INTENTIONAL SELF-INJURY
     Dosage: 150 MG, TOTAL
     Route: 048
     Dates: start: 20190917, end: 20190917

REACTIONS (4)
  - Blood creatinine increased [Recovering/Resolving]
  - Drug abuse [Unknown]
  - Hypokalaemia [Recovering/Resolving]
  - Dehydration [Recovering/Resolving]

NARRATIVE: CASE EVENT DATE: 20190917
